FAERS Safety Report 24534462 (Version 1)
Quarter: 2024Q4

REPORT INFORMATION
  Report Type: Spontaneous
  Country: US (occurrence: US)
  Receive Date: 20241022
  Receipt Date: 20241022
  Transmission Date: 20250114
  Serious: Yes (Other)
  Sender: NOVARTIS
  Company Number: US-002147023-NVSC2024US204604

PATIENT
  Age: 39 Year
  Sex: Female

DRUGS (4)
  1. IMATINIB [Suspect]
     Active Substance: IMATINIB
     Indication: Chronic myeloid leukaemia
     Dosage: EVERY OTHER DAY FOR THE FIRST 2 MONTHS
     Route: 065
  2. IMATINIB [Suspect]
     Active Substance: IMATINIB
     Dosage: INCREASED TO 400 MG DAILY
     Route: 065
  3. LISINOPRIL [Suspect]
     Active Substance: LISINOPRIL
     Indication: Product used for unknown indication
     Dosage: UNK
     Route: 065
  4. METOPROLOL [Suspect]
     Active Substance: METOPROLOL
     Indication: Product used for unknown indication
     Dosage: UNK
     Route: 065

REACTIONS (4)
  - Chronic cutaneous lupus erythematosus [Unknown]
  - Periorbital oedema [Unknown]
  - Rash [Unknown]
  - Photosensitivity reaction [Unknown]
